FAERS Safety Report 25812981 (Version 5)
Quarter: 2025Q4

REPORT INFORMATION
  Report Type: Other
  Country: US (occurrence: US)
  Receive Date: 20250917
  Receipt Date: 20251231
  Transmission Date: 20260118
  Serious: No
  Sender: TRAVERE THERAPEUTICS
  Company Number: US-TRAVERE-2025TVT01129

PATIENT
  Age: 52 Year
  Sex: Female

DRUGS (2)
  1. FILSPARI [Suspect]
     Active Substance: SPARSENTAN
     Indication: IgA nephropathy
     Dosage: INFORMED TO CUT HER 200 MG FILSPARI IN HALF
     Route: 048
     Dates: start: 20250610
  2. JARDIANCE [Suspect]
     Active Substance: EMPAGLIFLOZIN

REACTIONS (6)
  - Blood pressure fluctuation [None]
  - Blood bilirubin decreased [Unknown]
  - Dizziness [Unknown]
  - Pollakiuria [Unknown]
  - Urine abnormality [Unknown]
  - Off label use [Unknown]

NARRATIVE: CASE EVENT DATE: 20250801
